FAERS Safety Report 11168541 (Version 1)
Quarter: 2015Q2

REPORT INFORMATION
  Report Type: Spontaneous
  Country: US (occurrence: US)
  Receive Date: 20150605
  Receipt Date: 20150605
  Transmission Date: 20150821
  Serious: Yes (Other)
  Sender: FDA-Public Use
  Company Number: US-BAYER-2015-302010

PATIENT
  Sex: Female

DRUGS (3)
  1. ADALAT CC [Suspect]
     Active Substance: NIFEDIPINE
     Indication: BLOOD PRESSURE
     Dosage: 1 TAB A DAY
  2. ADALAT CC [Suspect]
     Active Substance: NIFEDIPINE
     Indication: BLOOD PRESSURE
     Dosage: 2 TAB A DAY
  3. ADALAT CC [Suspect]
     Active Substance: NIFEDIPINE
     Indication: BLOOD PRESSURE
     Dosage: 3-4 PILLS A DAY

REACTIONS (2)
  - Intentional product use issue [None]
  - Drug ineffective [None]
